FAERS Safety Report 26130153 (Version 1)
Quarter: 2025Q4

REPORT INFORMATION
  Report Type: Spontaneous
  Country: EU (occurrence: EU)
  Receive Date: 20251208
  Receipt Date: 20251208
  Transmission Date: 20260118
  Serious: Yes (Other)
  Sender: STRIDES
  Company Number: EU-STRIDES ARCOLAB LIMITED-2025SP015159

PATIENT
  Age: 12 Year
  Sex: Male
  Weight: 53.3 kg

DRUGS (6)
  1. PREDNISONE [Suspect]
     Active Substance: PREDNISONE
     Indication: Vogt-Koyanagi-Harada disease
     Dosage: TAPERED AND DISCONTINUED, RE-INITIATED AND DISCONTINUED
     Route: 048
  2. PREDNISONE [Suspect]
     Active Substance: PREDNISONE
     Dosage: TAPERED AND DISCONTINUED
     Route: 048
  3. PREDNISONE [Suspect]
     Active Substance: PREDNISONE
     Dosage: RE-INITIATED AND DISCONTINUED
     Route: 048
  4. PREDNISONE [Suspect]
     Active Substance: PREDNISONE
     Dosage: RE-INITIATION
     Route: 048
  5. MYCOPHENOLATE MOFETIL [Suspect]
     Active Substance: MYCOPHENOLATE MOFETIL
     Indication: Vogt-Koyanagi-Harada disease
     Dosage: UNK
     Route: 065
  6. MYCOPHENOLATE MOFETIL [Suspect]
     Active Substance: MYCOPHENOLATE MOFETIL
     Dosage: DOSE INCREASED
     Route: 065

REACTIONS (7)
  - Disease recurrence [Unknown]
  - Cushing^s syndrome [Unknown]
  - Hyperinsulinaemia [Unknown]
  - Withdrawal syndrome [Unknown]
  - Adrenal insufficiency [Unknown]
  - Growth retardation [Unknown]
  - Off label use [Unknown]
